FAERS Safety Report 7828906-1 (Version None)
Quarter: 2011Q4

REPORT INFORMATION
  Report Type: 
  Country: None (occurrence: None)
  Receive Date: 20111020
  Receipt Date: 20100315
  Transmission Date: 20120403
  Serious: No
  Sender: FDA-Public Use
  Company Number: US-BAYER-201016615NA

PATIENT
  Age: 73 Year
  Sex: Female

DRUGS (1)
  1. CIPROFLOXACIN [Suspect]

REACTIONS (1)
  - JOINT SWELLING [None]
